FAERS Safety Report 15737596 (Version 1)
Quarter: 2018Q4

REPORT INFORMATION
  Report Type: Report from Study
  Country: None (occurrence: DE)
  Receive Date: 20181219
  Receipt Date: 20181219
  Transmission Date: 20190205
  Serious: Yes (Hospitalization)
  Sender: FDA-Public Use
  Company Number: DE-ABBVIE-18K-062-2589412-00

PATIENT
  Sex: Female

DRUGS (3)
  1. SIMPONI [Concomitant]
     Active Substance: GOLIMUMAB
     Indication: PRODUCT USED FOR UNKNOWN INDICATION
     Dates: start: 2015
  2. HUMIRA [Suspect]
     Active Substance: ADALIMUMAB
     Route: 058
     Dates: start: 2016
  3. HUMIRA [Suspect]
     Active Substance: ADALIMUMAB
     Indication: ANKYLOSING SPONDYLITIS
     Route: 058
     Dates: start: 200702, end: 201404

REACTIONS (5)
  - Anal fissure [Recovered/Resolved]
  - Uveitis [Not Recovered/Not Resolved]
  - Vaginal infection [Recovered/Resolved]
  - Neurodermatitis [Unknown]
  - Nasal herpes [Not Recovered/Not Resolved]

NARRATIVE: CASE EVENT DATE: 2014
